FAERS Safety Report 11044458 (Version 3)
Quarter: 2015Q2

REPORT INFORMATION
  Report Type: Spontaneous
  Country: BR (occurrence: BR)
  Receive Date: 20150417
  Receipt Date: 20150603
  Transmission Date: 20150821
  Serious: Yes (Hospitalization, Other)
  Sender: FDA-Public Use
  Company Number: BR-PFIZER INC-2015127686

PATIENT
  Age: 83 Year
  Sex: Male
  Weight: 57 kg

DRUGS (11)
  1. ARADOIS [Concomitant]
     Active Substance: LOSARTAN POTASSIUM
     Indication: ANXIETY DISORDER
     Dosage: UNK
     Dates: start: 2007
  2. VASTIGMA [Concomitant]
     Indication: ANXIETY DISORDER
     Dosage: UNK
     Dates: start: 2007
  3. FRONTAL [Suspect]
     Active Substance: ALPRAZOLAM
     Indication: ANXIETY DISORDER
     Dosage: 2 TABLETS, DAILY
     Route: 048
     Dates: start: 1995
  4. DAFLON [Concomitant]
     Active Substance: DIOSMIN\HESPERIDIN
     Indication: ANXIETY DISORDER
     Dosage: UNK
     Dates: start: 2007
  5. CALTREN [Concomitant]
     Active Substance: NITRENDIPINE
     Indication: ANXIETY DISORDER
     Dosage: UNK
     Dates: start: 2007
  6. CITONEURIN [Concomitant]
     Active Substance: CYANOCOBALAMIN\PYRIDOXINE HYDROCHLORIDE\THIAMINE
     Indication: ANXIETY DISORDER
     Dosage: UNK
     Dates: start: 2007
  7. ALOIS [Concomitant]
     Active Substance: MEMANTINE
     Indication: ANXIETY DISORDER
     Dosage: UNK
     Dates: start: 2007
  8. OSTEONUTRI [Concomitant]
     Indication: ANXIETY DISORDER
     Dosage: UNK
     Dates: start: 2007
  9. FRONTAL [Suspect]
     Active Substance: ALPRAZOLAM
     Indication: SLEEP DISORDER
  10. ATENOLOL. [Concomitant]
     Active Substance: ATENOLOL
     Indication: ANXIETY DISORDER
     Dosage: UNK
     Dates: start: 2007
  11. ATORVASTATIN [Concomitant]
     Active Substance: ATORVASTATIN
     Indication: ANXIETY DISORDER
     Dosage: UNK
     Dates: start: 2007

REACTIONS (3)
  - Dementia Alzheimer^s type [Not Recovered/Not Resolved]
  - Bedridden [Recovered/Resolved]
  - Infarction [Recovered/Resolved]

NARRATIVE: CASE EVENT DATE: 2013
